FAERS Safety Report 4383346-5 (Version None)
Quarter: 2004Q2

REPORT INFORMATION
  Report Type: 
  Country: None (occurrence: None)
  Receive Date: 20040622
  Receipt Date: 20040622
  Transmission Date: 20050107
  Serious: Yes (Hospitalization, Other)
  Sender: FDA-Public Use
  Company Number: None

PATIENT
  Age: 33 Year
  Sex: Female

DRUGS (3)
  1. PROVIGIL [Suspect]
     Indication: DEPRESSION
     Dosage: TWO PO AM ONE PO PM
     Route: 048
     Dates: start: 20040224, end: 20040310
  2. REMERON [Concomitant]
  3. LEXAPRO [Concomitant]

REACTIONS (6)
  - CHILLS [None]
  - HEADACHE [None]
  - NAUSEA [None]
  - PYREXIA [None]
  - SYSTEMIC LUPUS ERYTHEMATOSUS [None]
  - VOMITING [None]
